FAERS Safety Report 5822312-7 (Version None)
Quarter: 2008Q3

REPORT INFORMATION
  Report Type: 
  Country: None (occurrence: None)
  Receive Date: 20080723
  Receipt Date: 20080723
  Transmission Date: 20090109
  Serious: Yes (Other)
  Sender: FDA-Public Use
  Company Number: None

PATIENT
  Sex: Female
  Weight: 63.5036 kg

DRUGS (1)
  1. CIPROFLOXACIN 400MG SAGENT [Suspect]
     Indication: PYELONEPHRITIS ACUTE
     Dosage: 400 MG/250ML D5W Q12H IV DRIP
     Route: 041
     Dates: start: 20080720, end: 20080720

REACTIONS (4)
  - FEELING ABNORMAL [None]
  - INFUSION SITE ERYTHEMA [None]
  - INJECTION SITE STREAKING [None]
  - TREMOR [None]
